FAERS Safety Report 9469902 (Version 1)
Quarter: 2013Q3

REPORT INFORMATION
  Report Type: Spontaneous
  Country: US (occurrence: US)
  Receive Date: 20130822
  Receipt Date: 20130822
  Transmission Date: 20140515
  Serious: Yes (Death)
  Sender: FDA-Public Use
  Company Number: US-ROCHE-1265026

PATIENT
  Age: 79 Year
  Sex: Male

DRUGS (2)
  1. XELODA [Suspect]
     Indication: OESOPHAGEAL CARCINOMA
     Route: 048
     Dates: start: 20130712
  2. LEXAPRO [Concomitant]
     Route: 048
     Dates: start: 20130709

REACTIONS (1)
  - Death [Fatal]
